FAERS Safety Report 7172295-5 (Version None)
Quarter: 2010Q4

REPORT INFORMATION
  Report Type: 
  Country: None (occurrence: None)
  Receive Date: 20101217
  Receipt Date: 20100204
  Transmission Date: 20110411
  Serious: No
  Sender: FDA-Public Use
  Company Number: US-AMGEN-KDL390842

PATIENT

DRUGS (2)
  1. ENBREL [Suspect]
     Indication: JUVENILE ARTHRITIS
     Dosage: 50 MG, QWK
     Route: 058
     Dates: start: 20100130
  2. SULFASALAZINE [Concomitant]
     Dosage: 2000 MG, QD
     Route: 048

REACTIONS (2)
  - DIARRHOEA [None]
  - HEADACHE [None]
